FAERS Safety Report 11234859 (Version 2)
Quarter: 2015Q3

REPORT INFORMATION
  Report Type: Spontaneous
  Country: US (occurrence: US)
  Receive Date: 20150702
  Receipt Date: 20150825
  Transmission Date: 20151125
  Serious: Yes (Other)
  Sender: FDA-Public Use
  Company Number: US-BAYER-2015-366412

PATIENT
  Age: 33 Year
  Sex: Female
  Weight: 172.79 kg

DRUGS (1)
  1. MIRENA [Suspect]
     Active Substance: LEVONORGESTREL
     Indication: CONTRACEPTION
     Dosage: 20 MCG/24HR, CONT
     Route: 015
     Dates: start: 20130924, end: 20150709

REACTIONS (5)
  - Drug ineffective [None]
  - Embedded device [Recovered/Resolved]
  - Vomiting in pregnancy [Recovered/Resolved]
  - Abdominal discomfort [Recovered/Resolved]
  - Pregnancy with contraceptive device [Recovered/Resolved]

NARRATIVE: CASE EVENT DATE: 201406
